FAERS Safety Report 16932319 (Version 1)
Quarter: 2019Q4

REPORT INFORMATION
  Report Type: Spontaneous
  Country: IS (occurrence: IS)
  Receive Date: 20191017
  Receipt Date: 20191017
  Transmission Date: 20200122
  Serious: Yes (Other)
  Sender: FDA-Public Use
  Company Number: IS-SAMSUNG BIOEPIS-SB-2019-30555

PATIENT
  Sex: Female

DRUGS (1)
  1. FLIXABI [Suspect]
     Active Substance: INFLIXIMAB
     Indication: PRODUCT USED FOR UNKNOWN INDICATION
     Dosage: UNKNOWN
     Route: 065
     Dates: start: 20190408

REACTIONS (6)
  - Oedema peripheral [Unknown]
  - Fatigue [Unknown]
  - Secretion discharge [Unknown]
  - Depressed mood [Unknown]
  - Haemorrhage [Unknown]
  - Condition aggravated [Unknown]
